FAERS Safety Report 7487924-6 (Version None)
Quarter: 2011Q2

REPORT INFORMATION
  Report Type: 
  Country: None (occurrence: None)
  Receive Date: 20110518
  Receipt Date: 20110412
  Transmission Date: 20111010
  Serious: Yes (Other)
  Sender: FDA-Public Use
  Company Number: US-BAYER-201038156NA

PATIENT
  Age: 19 Year
  Sex: Female
  Weight: 99.773 kg

DRUGS (1)
  1. YASMIN [Suspect]
     Indication: ACNE
     Dosage: UNK

REACTIONS (3)
  - GALLBLADDER DISORDER [None]
  - BILIARY DYSKINESIA [None]
  - ABDOMINAL PAIN [None]
